FAERS Safety Report 18606926 (Version 1)
Quarter: 2020Q4

REPORT INFORMATION
  Report Type: Spontaneous
  Country: CN (occurrence: CN)
  Receive Date: 20201212
  Receipt Date: 20201212
  Transmission Date: 20210114
  Serious: Yes (Other)
  Sender: FDA-Public Use
  Company Number: CN-ROCHE-2730065

PATIENT
  Age: 51 Year
  Sex: Female
  Weight: 57.5 kg

DRUGS (6)
  1. HERCEPTIN [Suspect]
     Active Substance: TRASTUZUMAB
     Indication: CHEMOTHERAPY
     Route: 041
     Dates: start: 20201118, end: 20201118
  2. DOCETAXEL. [Suspect]
     Active Substance: DOCETAXEL
     Indication: CHEMOTHERAPY
     Route: 041
     Dates: start: 20201118, end: 20201118
  3. SODIUM CHLORIDE. [Suspect]
     Active Substance: SODIUM CHLORIDE
     Indication: PRODUCT USED FOR UNKNOWN INDICATION
     Route: 041
     Dates: start: 20201118, end: 20201118
  4. CARBOPLATIN. [Suspect]
     Active Substance: CARBOPLATIN
     Indication: CHEMOTHERAPY
     Route: 041
     Dates: start: 20201118, end: 20201118
  5. GLUCOSE [Suspect]
     Active Substance: DEXTROSE
     Indication: PRODUCT USED FOR UNKNOWN INDICATION
     Route: 041
     Dates: start: 20201118, end: 20201118
  6. PERJETA [Suspect]
     Active Substance: PERTUZUMAB
     Indication: CHEMOTHERAPY
     Route: 041
     Dates: start: 20201118, end: 20201118

REACTIONS (3)
  - White blood cell count decreased [Recovered/Resolved]
  - Agranulocytosis [Recovered/Resolved]
  - Pyrexia [Recovered/Resolved]

NARRATIVE: CASE EVENT DATE: 20201127
